FAERS Safety Report 10053566 (Version 1)
Quarter: 2014Q2

REPORT INFORMATION
  Report Type: Spontaneous
  Country: US (occurrence: US)
  Receive Date: 20140402
  Receipt Date: 20140402
  Transmission Date: 20141212
  Serious: No
  Sender: FDA-Public Use
  Company Number: US-PFIZER INC-2014089363

PATIENT
  Age: 59 Year
  Sex: Male
  Weight: 84.81 kg

DRUGS (1)
  1. DILANTIN [Suspect]
     Indication: EPILEPSY
     Dosage: 2X/DAY (300 MG AT ONE TIME AND 200 MG THE SECOND TIME)

REACTIONS (1)
  - Blood triglycerides increased [Unknown]
